FAERS Safety Report 20065094 (Version 1)
Quarter: 2021Q4

REPORT INFORMATION
  Report Type: Report from Study
  Country: US (occurrence: US)
  Receive Date: 20211113
  Receipt Date: 20211113
  Transmission Date: 20220304
  Serious: Yes (Congenital Anomaly)
  Sender: FDA-Public Use
  Company Number: US-ABBVIE-21K-163-4153531-00

PATIENT
  Age: 63 Year
  Sex: Male

DRUGS (1)
  1. SKYRIZI [Suspect]
     Active Substance: RISANKIZUMAB-RZAA
     Indication: Psoriasis
     Dosage: WEEK 0, WEEK 4 , EVERY 12 WEEKS THEREAFTER
     Route: 058
     Dates: start: 20211026

REACTIONS (3)
  - Vomiting [Unknown]
  - Erythema [Unknown]
  - Pruritus [Unknown]

NARRATIVE: CASE EVENT DATE: 20211101
